FAERS Safety Report 24894187 (Version 1)
Quarter: 2025Q1

REPORT INFORMATION
  Report Type: Spontaneous
  Country: DK (occurrence: DK)
  Receive Date: 20250128
  Receipt Date: 20250128
  Transmission Date: 20250408
  Serious: Yes (Death, Hospitalization, Other)
  Sender: TEVA
  Company Number: DK-TEVA-VS-3290817

PATIENT
  Age: 70 Year
  Sex: Male
  Weight: 87.3 kg

DRUGS (4)
  1. PREDNISOLONE [Suspect]
     Active Substance: PREDNISOLONE
     Indication: Pneumonitis
     Route: 048
     Dates: start: 201711, end: 201802
  2. OPDIVO [Suspect]
     Active Substance: NIVOLUMAB
     Indication: Lung adenocarcinoma
     Route: 042
     Dates: start: 20170719, end: 20171211
  3. OPDIVO [Suspect]
     Active Substance: NIVOLUMAB
     Indication: Lung adenocarcinoma
     Route: 042
     Dates: start: 201611, end: 201712
  4. OPDIVO [Suspect]
     Active Substance: NIVOLUMAB
     Indication: Lung adenocarcinoma
     Dosage: 260 MILLIGRAM, APPROXIMATELY
     Route: 042
     Dates: start: 20170719, end: 20171124

REACTIONS (8)
  - Pneumocystis jirovecii pneumonia [Fatal]
  - Pelvic inflammatory disease [Unknown]
  - Interstitial lung disease [Fatal]
  - Respiratory failure [Fatal]
  - Sepsis [Fatal]
  - Hepatitis [Unknown]
  - Pneumonitis [Unknown]
  - Metastases to lung [Unknown]

NARRATIVE: CASE EVENT DATE: 20171116
